FAERS Safety Report 23365609 (Version 2)
Quarter: 2024Q2

REPORT INFORMATION
  Report Type: Spontaneous
  Country: RU (occurrence: RU)
  Receive Date: 20240104
  Receipt Date: 20240523
  Transmission Date: 20240715
  Serious: Yes (Hospitalization)
  Sender: FDA-Public Use
  Company Number: RU-JNJFOC-20231261584

PATIENT
  Age: 3 Month
  Sex: Male

DRUGS (1)
  1. ZAVESCA [Suspect]
     Active Substance: MIGLUSTAT
     Indication: Niemann-Pick disease
     Route: 065

REACTIONS (4)
  - Psychomotor skills impaired [Unknown]
  - Weight gain poor [Unknown]
  - Abdominal distension [Unknown]
  - Off label use [Unknown]
